FAERS Safety Report 9115046 (Version 1)
Quarter: 2013Q1

REPORT INFORMATION
  Report Type: Spontaneous
  Country: US (occurrence: None)
  Receive Date: 20130220
  Receipt Date: 20130220
  Transmission Date: 20140127
  Serious: Yes (Death)
  Sender: FDA-Public Use
  Company Number: None

PATIENT
  Age: 79 Year
  Sex: Male
  Weight: 80.9 kg

DRUGS (2)
  1. DRONEDARONE [Suspect]
     Indication: ATRIAL FIBRILLATION
     Route: 048
     Dates: start: 20120326, end: 20121205
  2. SIMVASTATIN [Suspect]
     Route: 048
     Dates: start: 20120326, end: 20121205

REACTIONS (2)
  - Sudden death [None]
  - Atrial fibrillation [None]
